FAERS Safety Report 25670122 (Version 1)
Quarter: 2025Q3

REPORT INFORMATION
  Report Type: Spontaneous
  Country: US (occurrence: US)
  Receive Date: 20250812
  Receipt Date: 20250812
  Transmission Date: 20251021
  Serious: No
  Sender: IPSEN BIOPHARMACEUTICALS, INC.
  Company Number: US-IPSEN Group, Research and Development-2025-19435

PATIENT
  Age: 67 Year
  Sex: Female

DRUGS (4)
  1. IQIRVO [Suspect]
     Active Substance: ELAFIBRANOR
     Indication: Product used for unknown indication
  2. IQIRVO [Suspect]
     Active Substance: ELAFIBRANOR
  3. OCALIVA [Suspect]
     Active Substance: OBETICHOLIC ACID
     Indication: Primary biliary cholangitis
     Dosage: UNKNOWN
     Dates: start: 20250209
  4. OCALIVA [Suspect]
     Active Substance: OBETICHOLIC ACID
     Dosage: UNKNOWN
     Dates: start: 20250211

REACTIONS (5)
  - Product dose omission issue [Unknown]
  - Flatulence [Not Recovered/Not Resolved]
  - Abdominal distension [Not Recovered/Not Resolved]
  - Weight increased [Unknown]
  - Constipation [Not Recovered/Not Resolved]

NARRATIVE: CASE EVENT DATE: 20250210
